FAERS Safety Report 14325826 (Version 1)
Quarter: 2017Q4

REPORT INFORMATION
  Report Type: Report from Study
  Country: CA (occurrence: CA)
  Receive Date: 20171226
  Receipt Date: 20171226
  Transmission Date: 20180321
  Serious: Yes (Death)
  Sender: FDA-Public Use
  Company Number: CA-JNJFOC-20171013530

PATIENT
  Age: 80 Year
  Sex: Female
  Weight: 66.22 kg

DRUGS (1)
  1. DARZALEX [Suspect]
     Active Substance: DARATUMUMAB
     Indication: PLASMA CELL MYELOMA
     Dosage: STRENGTH = 400 MG
     Route: 042
     Dates: start: 20160928, end: 20170927

REACTIONS (3)
  - White blood cell disorder [Recovering/Resolving]
  - Red blood cell abnormality [Recovering/Resolving]
  - Pancytopenia [Fatal]

NARRATIVE: CASE EVENT DATE: 20171010
